FAERS Safety Report 7574318-8 (Version None)
Quarter: 2011Q2

REPORT INFORMATION
  Report Type: 
  Country: None (occurrence: None)
  Receive Date: 20110627
  Receipt Date: 20110617
  Transmission Date: 20111010
  Serious: Yes (Other)
  Sender: FDA-Public Use
  Company Number: DE-BRISTOL-MYERS SQUIBB COMPANY-15840689

PATIENT
  Age: 76 Year
  Sex: Male

DRUGS (5)
  1. PREZISTA [Suspect]
  2. ABACAVIR SULFATE AND LAMIVUDINE [Suspect]
  3. NORVIR [Suspect]
  4. BARACLUDE [Suspect]
  5. VIREAD [Suspect]

REACTIONS (1)
  - ACUTE MYOCARDIAL INFARCTION [None]
